FAERS Safety Report 16342652 (Version 1)
Quarter: 2019Q2

REPORT INFORMATION
  Report Type: Spontaneous
  Country: US (occurrence: US)
  Receive Date: 20190522
  Receipt Date: 20190522
  Transmission Date: 20190711
  Serious: No
  Sender: FDA-Public Use
  Company Number: US-TEVA-2019-US-1051214

PATIENT
  Age: 89 Year
  Sex: Female
  Weight: 54.88 kg

DRUGS (1)
  1. FEXOFENADINE [Suspect]
     Active Substance: FEXOFENADINE\FEXOFENADINE HYDROCHLORIDE
     Indication: UPPER-AIRWAY COUGH SYNDROME
     Route: 048
     Dates: start: 20190501, end: 20190502

REACTIONS (2)
  - Drug ineffective for unapproved indication [Unknown]
  - Product administered to patient of inappropriate age [Unknown]
